FAERS Safety Report 4977741-0 (Version None)
Quarter: 2006Q1

REPORT INFORMATION
  Report Type: 
  Country: None (occurrence: None)
  Receive Date: 20060215
  Receipt Date: 20051123
  Transmission Date: 20060701
  Serious: Yes (Hospitalization)
  Sender: FDA-Public Use
  Company Number: MC200501073

PATIENT
  Age: 70 Year
  Sex: Female

DRUGS (4)
  1. ANGIOMAX [Suspect]
     Indication: ARTERIOGRAM CORONARY
  2. ASPIRIN [Concomitant]
  3. PLAVIX [Concomitant]
  4. NITROGLYCERIN ^A.L.^ (GLYCERYL TRINITRATE) [Concomitant]

REACTIONS (1)
  - HAEMORRHAGE [None]
